FAERS Safety Report 5474146-3 (Version None)
Quarter: 2007Q3

REPORT INFORMATION
  Report Type: 
  Country: None (occurrence: None)
  Receive Date: 20070830
  Receipt Date: 20061205
  Transmission Date: 20080115
  Serious: Yes (Hospitalization)
  Sender: FDA-Public Use
  Company Number: 200710272EU

PATIENT
  Age: 65 Year
  Sex: Female
  Weight: 109.8 kg

DRUGS (10)
  1. LASIX [Suspect]
     Dosage: 40 MG BID
  2. STUDY DRUG UNKNOWN [Concomitant]
  3. LISINOPRIL [Concomitant]
  4. METOPROLOL [Concomitant]
  5. SULAR [Concomitant]
  6. LATANOPROST (XALATAN) [Concomitant]
  7. FLUOCINONIDE [Concomitant]
  8. YELLOW PHENOLPHTHALEIN (EX-LAX) [Concomitant]
  9. PSYLLIUM HYDROPHILIC MUCILLOID (METAMUCIL) [Concomitant]
  10. MAXZIDE [Concomitant]

REACTIONS (3)
  - BRADYCARDIA [None]
  - HYPOKALAEMIA [None]
  - SYNCOPE [None]
